FAERS Safety Report 7649994-1 (Version None)
Quarter: 2011Q3

REPORT INFORMATION
  Report Type: 
  Country: None (occurrence: None)
  Receive Date: 20110802
  Receipt Date: 20110728
  Transmission Date: 20111222
  Serious: Yes (Hospitalization)
  Sender: FDA-Public Use
  Company Number: FR-BRISTOL-MYERS SQUIBB COMPANY-15935307

PATIENT
  Age: 32 Year
  Sex: Male

DRUGS (5)
  1. TRUVADA [Suspect]
     Route: 048
  2. ABILIFY [Suspect]
     Dosage: TABS
  3. NORVIR [Suspect]
     Dosage: CAPSULES
     Route: 048
  4. TRILEPTAL [Suspect]
     Route: 048
  5. REYATAZ [Suspect]
     Route: 048

REACTIONS (1)
  - RENAL COLIC [None]
